FAERS Safety Report 23783627 (Version 4)
Quarter: 2024Q3

REPORT INFORMATION
  Report Type: Spontaneous
  Country: CA (occurrence: CA)
  Receive Date: 20240425
  Receipt Date: 20240930
  Transmission Date: 20241017
  Serious: Yes (Hospitalization, Other)
  Sender: VERTEX
  Company Number: CA-VERTEX PHARMACEUTICALS-2024-006971

PATIENT
  Age: 43 Year
  Sex: Female
  Weight: 64 kg

DRUGS (42)
  1. TRIKAFTA [Suspect]
     Active Substance: ELEXACAFTOR\IVACAFTOR\TEZACAFTOR
     Indication: Cystic fibrosis
     Dosage: STANDARD ADULT DOSE
     Route: 048
     Dates: start: 20211201
  2. TOBI [Concomitant]
     Active Substance: TOBRAMYCIN
     Indication: Illness
     Dosage: UNK, PRN
     Route: 055
  3. ZENHALE [Concomitant]
     Active Substance: FORMOTEROL FUMARATE\MOMETASONE FUROATE
     Dosage: 2 PUFFS (200 MCG) BID
     Route: 055
  4. AZITHROMYCIN [Concomitant]
     Active Substance: AZITHROMYCIN
     Dosage: 250 MG DAILY
  5. MONTELUKAST [Concomitant]
     Active Substance: MONTELUKAST SODIUM
     Dosage: 10 MG DAILY
  6. XOLAIR [Concomitant]
     Active Substance: OMALIZUMAB
     Dosage: 225 MG ONCE MONTHLY REDUCED FROM Q 2 WEEKS
  7. XOLAIR [Concomitant]
     Active Substance: OMALIZUMAB
     Dosage: REDUCED
     Dates: start: 202312
  8. ECS [Concomitant]
     Dosage: 20 (8-9 WITH MEALS, 5-6 WITH SNACKS)
  9. VITAMIN D [Concomitant]
     Active Substance: VITAMIN D NOS
     Dosage: 2000 UNITS DAILY
  10. CENTRUM FORTE [Concomitant]
     Dosage: 2 DOSAGE FORM DAILY
  11. VITAMIN E [Concomitant]
     Active Substance: .ALPHA.-TOCOPHEROL
     Dosage: 400 UNITS DAILY
  12. PANTOPRAZOLE SODIUM [Concomitant]
     Active Substance: PANTOPRAZOLE SODIUM
     Dosage: 40 MG DAILY
  13. PRUCALOPRIDE SUCCINATE [Concomitant]
     Active Substance: PRUCALOPRIDE SUCCINATE
     Dosage: 4 MG DAILY
  14. PEG 3350 [Concomitant]
     Active Substance: POLYETHYLENE GLYCOL 3350
     Dosage: UNK, PRN
  15. TRESIBA [Concomitant]
     Active Substance: INSULIN DEGLUDEC
     Dosage: UNK
  16. TRESIBA [Concomitant]
     Active Substance: INSULIN DEGLUDEC
     Dosage: DECREASED TO 16 UNITS DAILY
  17. FIASP [Concomitant]
     Active Substance: INSULIN ASPART
     Dosage: 1:15 WITH MEALS
  18. OZEMPIC [Concomitant]
     Active Substance: SEMAGLUTIDE
     Dosage: 0.5 MG S/C ONCE WEEKLY
     Route: 058
  19. LYRICA [Concomitant]
     Active Substance: PREGABALIN
     Dosage: 1 EVERY 12 HOURS
  20. ATIVAN [Concomitant]
     Active Substance: LORAZEPAM
     Dosage: 1 MG 2 X/WEEK
  21. ZOPICLONE [Concomitant]
     Active Substance: ZOPICLONE
     Dosage: 7.5 MG PRN (3-4X/WEEK)
  22. VYVANSE [Concomitant]
     Active Substance: LISDEXAMFETAMINE DIMESYLATE
     Dosage: 60 MG DAILY
  23. ESCITALOPRAM [Concomitant]
     Active Substance: ESCITALOPRAM OXALATE
     Dosage: 20 MG DAILY
  24. NAPROSYN [Concomitant]
     Active Substance: NAPROXEN
     Dosage: RARELY
  25. IBUPROFEN [Concomitant]
     Active Substance: IBUPROFEN
     Dosage: UNK, PRN
  26. TYLENOL ARTHRITIS PAIN [Concomitant]
     Active Substance: ACETAMINOPHEN
     Dosage: 2 DOSAGE FORM DAILY
  27. VALACYCLOVIR HYDROCHLORIDE [Concomitant]
     Active Substance: VALACYCLOVIR HYDROCHLORIDE
     Dosage: 200 MG DAILY
  28. PERINDOPRIL [Concomitant]
     Active Substance: PERINDOPRIL
     Dosage: 2 MG DAILY
  29. PNEUMOVAX 23 [Concomitant]
     Active Substance: PNEUMOCOCCAL VACCINE, POLYVALENT 23
     Dosage: UNK
     Dates: start: 2019
  30. PFIZER-BIONTECH COVID-19 VACCINE [Concomitant]
     Active Substance: TOZINAMERAN
     Indication: Immunisation
     Dosage: UNK
     Dates: start: 202105
  31. PFIZER-BIONTECH COVID-19 VACCINE [Concomitant]
     Active Substance: TOZINAMERAN
     Dosage: UNK
     Dates: start: 202107
  32. PFIZER-BIONTECH COVID-19 VACCINE [Concomitant]
     Active Substance: TOZINAMERAN
     Dosage: UNK
     Dates: start: 202202
  33. LACTOBACILLUS ACID [Concomitant]
     Dosage: 2 CAPS, DAILY
  34. ERYTHROMYCIN [Concomitant]
     Active Substance: ERYTHROMYCIN
  35. INSULIN ASPART [Concomitant]
     Active Substance: INSULIN ASPART
  36. OMALIZUMAB [Concomitant]
     Active Substance: OMALIZUMAB
  37. PANTOPRAZOLE SODIUM [Concomitant]
     Active Substance: PANTOPRAZOLE SODIUM
  38. PRUCALOPRIDE SUCCINATE [Concomitant]
     Active Substance: PRUCALOPRIDE SUCCINATE
  39. SEMAGLUTIDE [Concomitant]
     Active Substance: SEMAGLUTIDE
     Route: 058
  40. TOZINAMERAN [Concomitant]
     Active Substance: TOZINAMERAN
     Indication: Immunisation
  41. TYLENOL 8 HR ARTHRITIS PAIN [Concomitant]
     Active Substance: ACETAMINOPHEN
  42. ZOPICLONE [Concomitant]
     Active Substance: ZOPICLONE

REACTIONS (3)
  - Acute respiratory distress syndrome [Recovering/Resolving]
  - Sepsis [Recovering/Resolving]
  - Pneumonia [Not Recovered/Not Resolved]

NARRATIVE: CASE EVENT DATE: 20240412
